FAERS Safety Report 9681218 (Version 1)
Quarter: 2013Q4

REPORT INFORMATION
  Report Type: Report from Study
  Country: CA (occurrence: CA)
  Receive Date: 20131111
  Receipt Date: 20131111
  Transmission Date: 20140711
  Serious: Yes (Hospitalization, Other)
  Sender: FDA-Public Use
  Company Number: CA-JNJFOC-20131100981

PATIENT
  Age: 31 Year
  Sex: Male
  Weight: 65 kg

DRUGS (7)
  1. REMICADE [Suspect]
     Indication: COLITIS ULCERATIVE
     Dosage: 10 MG/KG
     Route: 042
     Dates: start: 20130410
  2. REMICADE [Suspect]
     Indication: COLITIS ULCERATIVE
     Route: 042
     Dates: start: 20130909
  3. REMICADE [Suspect]
     Indication: COLITIS ULCERATIVE
     Route: 042
  4. IMURAN [Concomitant]
     Route: 048
  5. PREDNISONE [Concomitant]
     Dosage: ONE WEEK PRIOR TO 13-OCT-2013
     Route: 065
     Dates: start: 20131006
  6. PREDNISONE [Concomitant]
     Route: 065
  7. SOLU MEDROL [Concomitant]
     Route: 042

REACTIONS (4)
  - Cytomegalovirus infection [Not Recovered/Not Resolved]
  - Leukopenia [Unknown]
  - Platelet count decreased [Unknown]
  - Haemoglobin decreased [Unknown]
